FAERS Safety Report 8390985-3 (Version None)
Quarter: 2012Q2

REPORT INFORMATION
  Report Type: 
  Country: None (occurrence: None)
  Receive Date: 20120529
  Receipt Date: 20120521
  Transmission Date: 20120825
  Serious: Yes (Hospitalization)
  Sender: FDA-Public Use
  Company Number: US-BAYER-2012-038089

PATIENT
  Age: 33 Year
  Sex: Female

DRUGS (10)
  1. HYDROCODONE BITARTRATE/HOMATROPINE METHYBROMIDE [Concomitant]
  2. AZITHROMYCIN [Concomitant]
     Dosage: 250 MG, UNK
  3. ZOSYN [Concomitant]
  4. AVELOX [Concomitant]
  5. YASMIN [Suspect]
     Dosage: UNK
     Dates: start: 20070316, end: 20080907
  6. METHYLPREDNISOLONE [Concomitant]
     Dosage: 4 MG, UNK
  7. DROSPIRENONE AND ETHINYL ESTRADIOL [Suspect]
     Dosage: UNK
     Dates: start: 20080316, end: 20080907
  8. YAZ [Suspect]
     Dosage: UNK
     Dates: start: 20070316, end: 20080907
  9. PHENTERMINE [Concomitant]
     Dosage: 37.5 MG, UNK
  10. LEVAQUIN [Concomitant]
     Indication: PNEUMONIA
     Dosage: 750 MG, QD FOR 5 DAYS

REACTIONS (11)
  - PULMONARY EMBOLISM [None]
  - EMOTIONAL DISTRESS [None]
  - DEPRESSION [None]
  - THROMBOCYTOPENIA [None]
  - INJURY [None]
  - THROMBOCYTOSIS [None]
  - SPLENOMEGALY [None]
  - PORTAL VEIN THROMBOSIS [None]
  - VENA CAVA THROMBOSIS [None]
  - FEAR OF DEATH [None]
  - NERVOUSNESS [None]
